FAERS Safety Report 9591997 (Version 1)
Quarter: 2013Q4

REPORT INFORMATION
  Report Type: Spontaneous
  Country: KR (occurrence: KR)
  Receive Date: 20131004
  Receipt Date: 20131004
  Transmission Date: 20140711
  Serious: Yes (Life-Threatening)
  Sender: FDA-Public Use
  Company Number: KR-ROCHE-1284532

PATIENT
  Age: 74 Year
  Sex: Female

DRUGS (3)
  1. ACTILYSE [Suspect]
     Indication: INTRACARDIAC THROMBUS
     Dosage: 100 MG ONE IN ONCE
     Route: 042
  2. ACTILYSE [Suspect]
     Indication: OFF LABEL USE
  3. UNFRACTIONATED HEPARIN [Suspect]
     Indication: INTRACARDIAC THROMBUS
     Route: 065

REACTIONS (5)
  - Embolism [Recovered/Resolved]
  - Pulmonary embolism [Recovered/Resolved]
  - Cardiac arrest [Recovered/Resolved]
  - Right ventricular dysfunction [Recovered/Resolved]
  - Circulatory collapse [Recovered/Resolved]
